FAERS Safety Report 7590882-7 (Version None)
Quarter: 2011Q3

REPORT INFORMATION
  Report Type: 
  Country: None (occurrence: None)
  Receive Date: 20110705
  Receipt Date: 20110624
  Transmission Date: 20111222
  Serious: Yes (Other)
  Sender: FDA-Public Use
  Company Number: PHHO2011BE11007

PATIENT
  Age: 38 Year
  Sex: Male
  Weight: 61.5 kg

DRUGS (2)
  1. VORICONAZOLE [Concomitant]
     Indication: ASPERGILLOSIS
  2. NEORAL [Suspect]

REACTIONS (1)
  - THROMBOTIC THROMBOCYTOPENIC PURPURA [None]
